FAERS Safety Report 4907037-4 (Version None)
Quarter: 2006Q1

REPORT INFORMATION
  Report Type: 
  Country: None (occurrence: None)
  Receive Date: 20060207
  Receipt Date: 20060117
  Transmission Date: 20060701
  Serious: Yes (Other)
  Sender: FDA-Public Use
  Company Number: USA0510111584

PATIENT
  Age: 50 Year
  Sex: Female

DRUGS (1)
  1. HUMULIN (HUMAN INSULIN (RDNA ORIGIN) [Suspect]
     Indication: DIABETES MELLITUS INSULIN-DEPENDENT
     Dates: end: 20020101

REACTIONS (5)
  - ABNORMAL BEHAVIOUR [None]
  - ANXIETY [None]
  - EUPHORIC MOOD [None]
  - NERVOUSNESS [None]
  - ROAD TRAFFIC ACCIDENT [None]
